FAERS Safety Report 15770128 (Version 1)
Quarter: 2018Q4

REPORT INFORMATION
  Report Type: Spontaneous
  Country: US (occurrence: US)
  Receive Date: 20181228
  Receipt Date: 20181228
  Transmission Date: 20190205
  Serious: No
  Sender: FDA-Public Use
  Company Number: US-PFIZER INC-2018530780

PATIENT
  Age: 85 Year
  Sex: Female

DRUGS (7)
  1. TYLENOL [Concomitant]
     Active Substance: ACETAMINOPHEN
     Indication: PAIN
     Dosage: 650 MG, AS NEEDED [EVERY 6 (SIX) HOURS]
     Route: 048
  2. SODIUM CHLORIDE. [Concomitant]
     Active Substance: SODIUM CHLORIDE
     Dosage: 5 ML, AS NEEDED [INJECT 5 ML INTO A CATHETER ONCE AS NEEDED FOR LINE CARE]
  3. ASPIRIN EC [Concomitant]
     Active Substance: ASPIRIN
     Dosage: 81 MG, DAILY
     Route: 048
  4. MINIPRESS [Suspect]
     Active Substance: PRAZOSIN HYDROCHLORIDE
     Indication: RAYNAUD^S PHENOMENON
     Dosage: 3 MG, DAILY [1 MG IN THE MORNING, TAKE 2 MG IN THE EVENING]
     Route: 048
  5. DEMADEX [TORASEMIDE] [Concomitant]
     Dosage: 40 MG, DAILY [TAKE 2 TABLETS]
     Route: 048
  6. KENALOG [Concomitant]
     Active Substance: TRIAMCINOLONE ACETONIDE
     Indication: PRURITUS
     Dosage: UNK, 2X/DAY
     Route: 061
  7. PRILOSEC [Concomitant]
     Active Substance: OMEPRAZOLE MAGNESIUM
     Dosage: 40 MG, DAILY
     Route: 048

REACTIONS (3)
  - Oedema peripheral [Unknown]
  - Abdominal distension [Unknown]
  - Drug ineffective for unapproved indication [Unknown]
